FAERS Safety Report 5413416-1 (Version None)
Quarter: 2007Q3

REPORT INFORMATION
  Report Type: 
  Country: None (occurrence: None)
  Receive Date: 20070810
  Receipt Date: 20070531
  Transmission Date: 20080115
  Serious: Yes (Other)
  Sender: FDA-Public Use
  Company Number: 2007VX001525

PATIENT
  Age: 79 Year

DRUGS (1)
  1. EFUDEX [Suspect]
     Indication: SKIN DISORDER
     Dosage: BIW;TOP
     Route: 061

REACTIONS (6)
  - PAIN IN EXTREMITY [None]
  - PAIN OF SKIN [None]
  - RASH ERYTHEMATOUS [None]
  - RASH MACULAR [None]
  - RASH PRURITIC [None]
  - SKIN LESION [None]
